FAERS Safety Report 9869706 (Version 1)
Quarter: 2014Q1

REPORT INFORMATION
  Report Type: Spontaneous
  Country: US (occurrence: None)
  Receive Date: 20140131
  Receipt Date: 20140131
  Transmission Date: 20141002
  Serious: Yes (Death)
  Sender: FDA-Public Use
  Company Number: 2014AP000546

PATIENT
  Age: 36 Year
  Sex: Male

DRUGS (13)
  1. LOSARTAN POTASSIUM TABLETS [Suspect]
     Route: 048
  2. AMLODIPINE BESYLATE TABLETS [Suspect]
     Route: 048
  3. METOPROLOL [Suspect]
     Route: 048
  4. MECLIZINE [Suspect]
     Route: 048
  5. QUININE [Suspect]
     Route: 048
  6. ISOSORBIDE DINITRATE [Suspect]
     Route: 048
  7. TAMULOSIN [Suspect]
     Route: 048
  8. POTASSIUM CHLORIDE [Suspect]
     Route: 048
  9. FINASTERIDE [Suspect]
     Route: 048
  10. FUROSEMIDE [Suspect]
     Route: 048
  11. ETHANOL [Suspect]
     Route: 048
  12. MIDAZOLAM [Suspect]
     Route: 048
  13. TEMAZEPAM [Suspect]
     Route: 048

REACTIONS (2)
  - Completed suicide [None]
  - Cardio-respiratory arrest [None]
